FAERS Safety Report 9459696 (Version 1)
Quarter: 2013Q3

REPORT INFORMATION
  Report Type: Spontaneous
  Country: CN (occurrence: CN)
  Receive Date: 20130815
  Receipt Date: 20130815
  Transmission Date: 20140515
  Serious: Yes (Other)
  Sender: FDA-Public Use
  Company Number: CN-PERRIGO-13CN008210

PATIENT
  Age: 82 Year
  Sex: Female

DRUGS (3)
  1. GENTAMICIN SULFATE RX 0.1% 1A5 [Suspect]
     Indication: ANTIBIOTIC PROPHYLAXIS
     Dosage: UNK, UNK
     Route: 061
     Dates: start: 200610
  2. AMPICILLIN [Suspect]
     Indication: URINARY TRACT INFECTION
     Dosage: UNK, UNK
     Route: 065
  3. CLAVULANIC ACID [Suspect]
     Indication: URINARY TRACT INFECTION
     Route: 065

REACTIONS (2)
  - Mycobacterial peritonitis [Recovered/Resolved]
  - Mycobacterium abscessus infection [Recovered/Resolved]
